FAERS Safety Report 5010620-1 (Version None)
Quarter: 2006Q2

REPORT INFORMATION
  Report Type: 
  Country: None (occurrence: None)
  Receive Date: 20060525
  Receipt Date: 20060516
  Transmission Date: 20061013
  Serious: Yes (Hospitalization, Other)
  Sender: FDA-Public Use
  Company Number: FR-BRISTOL-MYERS SQUIBB COMPANY-13380092

PATIENT
  Age: 73 Year
  Sex: Male
  Weight: 76 kg

DRUGS (6)
  1. ELISOR TABS [Suspect]
     Route: 048
  2. IKOREL [Suspect]
     Route: 048
  3. CORVASAL [Suspect]
     Route: 048
  4. PROZAC [Suspect]
     Route: 048
  5. BISOPROLOL FUMARATE [Suspect]
     Route: 048
  6. TARCEVA [Suspect]
     Route: 048
     Dates: start: 20051221, end: 20060217

REACTIONS (7)
  - ASTHENIA [None]
  - DIARRHOEA [None]
  - DIZZINESS [None]
  - HYPERCAPNIA [None]
  - HYPOXIA [None]
  - INTERSTITIAL LUNG DISEASE [None]
  - LUNG NEOPLASM [None]
